FAERS Safety Report 10062951 (Version 1)
Quarter: 2014Q2

REPORT INFORMATION
  Report Type: Spontaneous
  Country: DE (occurrence: DE)
  Receive Date: 20140407
  Receipt Date: 20140407
  Transmission Date: 20141212
  Serious: Yes (Congenital Anomaly)
  Sender: FDA-Public Use
  Company Number: DE-TEVA-472547GER

PATIENT
  Age: 1 Day
  Sex: Female
  Weight: 3.9 kg

DRUGS (6)
  1. VENLAFAXINE [Suspect]
     Route: 064
  2. SINGULAIR [Suspect]
     Route: 064
  3. SYMBICORT [Concomitant]
     Route: 064
  4. BEROTEC [Concomitant]
     Route: 064
  5. LEVOTHYROXIN [Concomitant]
     Route: 064
  6. FOL 400 [Concomitant]
     Route: 064

REACTIONS (1)
  - Congenital naevus [Not Recovered/Not Resolved]
